FAERS Safety Report 7162407-1 (Version None)
Quarter: 2010Q4

REPORT INFORMATION
  Report Type: 
  Country: None (occurrence: None)
  Receive Date: 20101215
  Receipt Date: 20101209
  Transmission Date: 20110411
  Serious: No
  Sender: FDA-Public Use
  Company Number: US-ROCHE-747954

PATIENT
  Sex: Male

DRUGS (1)
  1. TAMIFLU [Suspect]
     Dosage: DOSE: 12MG/ML, 1 TEASPOON TWICE A DAY
     Route: 065

REACTIONS (2)
  - RASH GENERALISED [None]
  - UNDERDOSE [None]
